FAERS Safety Report 4501130-6 (Version None)
Quarter: 2004Q4

REPORT INFORMATION
  Report Type: 
  Country: None (occurrence: None)
  Receive Date: 20041109
  Receipt Date: 20041026
  Transmission Date: 20050328
  Serious: Yes (Death)
  Sender: FDA-Public Use
  Company Number: USA041082676

PATIENT
  Sex: Male

DRUGS (1)
  1. ZYPREXA [Suspect]
     Dates: start: 20020701

REACTIONS (4)
  - AKATHISIA [None]
  - COMPLETED SUICIDE [None]
  - GUN SHOT WOUND [None]
  - SLEEP DISORDER [None]
